FAERS Safety Report 5399520-5 (Version None)
Quarter: 2007Q3

REPORT INFORMATION
  Report Type: 
  Country: None (occurrence: None)
  Receive Date: 20070727
  Receipt Date: 20070716
  Transmission Date: 20080115
  Serious: Yes (Other)
  Sender: FDA-Public Use
  Company Number: US-PFIZER INC-2007045562

PATIENT
  Sex: Female
  Weight: 61.2 kg

DRUGS (5)
  1. CHANTIX [Suspect]
  2. ESTRADIOL [Concomitant]
  3. ZOCOR [Concomitant]
  4. ALLEGRA [Concomitant]
  5. CELEBREX [Concomitant]

REACTIONS (3)
  - AGITATION [None]
  - ANXIETY [None]
  - HOMICIDAL IDEATION [None]
